FAERS Safety Report 5602870-8 (Version None)
Quarter: 2008Q1

REPORT INFORMATION
  Report Type: 
  Country: None (occurrence: None)
  Receive Date: 20080125
  Receipt Date: 20080116
  Transmission Date: 20080703
  Serious: Yes (Other)
  Sender: FDA-Public Use
  Company Number: US-ABBOTT-08P-163-0433984-00

PATIENT
  Sex: Female
  Weight: 52.21 kg

DRUGS (5)
  1. HUMIRA [Suspect]
     Indication: CROHN'S DISEASE
     Route: 058
     Dates: start: 20071102, end: 20071116
  2. HUMIRA [Suspect]
     Route: 058
     Dates: start: 20071005, end: 20071005
  3. HUMIRA [Suspect]
     Route: 058
     Dates: start: 20071019, end: 20071019
  4. BUDESONIDE [Concomitant]
     Indication: CROHN'S DISEASE
     Route: 048
  5. RIFAXIMIN [Concomitant]
     Indication: CROHN'S DISEASE
     Route: 048

REACTIONS (1)
  - OPTIC NEURITIS [None]
